FAERS Safety Report 25937057 (Version 1)
Quarter: 2025Q4

REPORT INFORMATION
  Report Type: Spontaneous
  Country: A1 (occurrence: US)
  Receive Date: 20251017
  Receipt Date: 20251017
  Transmission Date: 20260118
  Serious: No
  Sender: INTERNATIONAL MEDICATION SYSTEM
  Company Number: US-International Medication Systems, Limited-2186784

PATIENT

DRUGS (1)
  1. EPINEPHRINE [Suspect]
     Active Substance: EPINEPHRINE
     Indication: Resuscitation

REACTIONS (3)
  - Device breakage [Unknown]
  - No adverse event [Unknown]
  - Drug dose omission by device [Unknown]
